FAERS Safety Report 16148486 (Version 2)
Quarter: 2019Q2

REPORT INFORMATION
  Report Type: Report from Study
  Country: US (occurrence: US)
  Receive Date: 20190402
  Receipt Date: 20190412
  Transmission Date: 20190711
  Serious: Yes (Hospitalization, Other)
  Sender: FDA-Public Use
  Company Number: PHEH2019US013255

PATIENT
  Sex: Male

DRUGS (2)
  1. ENTRESTO [Suspect]
     Active Substance: SACUBITRIL\VALSARTAN
     Dosage: 1 DF (49 MG SACUBITRIL/ 51 MG VALSARTAN), UNK
     Route: 048
  2. ENTRESTO [Suspect]
     Active Substance: SACUBITRIL\VALSARTAN
     Indication: PRODUCT USED FOR UNKNOWN INDICATION
     Dosage: 1 DF (24 MG SACUBITRIL/ 26 MG VALSARTAN), UNK
     Route: 048

REACTIONS (23)
  - Hypertension [Unknown]
  - Weight decreased [Unknown]
  - Ejection fraction decreased [Unknown]
  - Fluid retention [Unknown]
  - Blood urine present [Unknown]
  - Glycosylated haemoglobin abnormal [Unknown]
  - Ocular icterus [Unknown]
  - Thrombosis [Unknown]
  - Weight increased [Unknown]
  - Vein disorder [Unknown]
  - Hypotension [Unknown]
  - Bladder cancer [Unknown]
  - Loss of consciousness [Recovered/Resolved]
  - Loss of consciousness [Unknown]
  - Cardiac disorder [Unknown]
  - Pain in extremity [Unknown]
  - Dyspnoea [Unknown]
  - Mobility decreased [Unknown]
  - Weight fluctuation [Unknown]
  - Dehydration [Unknown]
  - Insomnia [Unknown]
  - Pollakiuria [Unknown]
  - Atrial fibrillation [Unknown]
